FAERS Safety Report 14178069 (Version 2)
Quarter: 2018Q1

REPORT INFORMATION
  Report Type: Spontaneous
  Country: NL (occurrence: NL)
  Receive Date: 20171110
  Receipt Date: 20180308
  Transmission Date: 20180508
  Serious: Yes (Hospitalization)
  Sender: FDA-Public Use
  Company Number: NL-UCBSA-2017044602

PATIENT
  Age: 22 Year
  Sex: Female
  Weight: 60 kg

DRUGS (2)
  1. CIMZIA [Suspect]
     Active Substance: CERTOLIZUMAB PEGOL
     Dosage: UNK
     Route: 058
     Dates: start: 2015
  2. CIMZIA [Suspect]
     Active Substance: CERTOLIZUMAB PEGOL
     Indication: RHEUMATOID ARTHRITIS
     Dosage: 200 MG/ML
     Route: 058
     Dates: start: 20120701, end: 20141001

REACTIONS (7)
  - Infection susceptibility increased [Not Recovered/Not Resolved]
  - Anogenital warts [Recovering/Resolving]
  - Upper respiratory tract infection [Recovering/Resolving]
  - Febrile neutropenia [Recovered/Resolved]
  - Pharyngitis [Recovering/Resolving]
  - Influenza [Recovered/Resolved]
  - Infection [Unknown]

NARRATIVE: CASE EVENT DATE: 20140901
